FAERS Safety Report 4663946-5 (Version None)
Quarter: 2005Q2

REPORT INFORMATION
  Report Type: 
  Country: None (occurrence: None)
  Receive Date: 20050503
  Receipt Date: 20031006
  Transmission Date: 20051028
  Serious: Yes (Other)
  Sender: FDA-Public Use
  Company Number: M2003.5756

PATIENT
  Age: 34 Year
  Sex: Male
  Weight: 74.8435 kg

DRUGS (3)
  1. ALPRAZOLAM [Suspect]
     Indication: ANXIETY
     Dosage: 3 TABLETS DAILY
     Dates: start: 20030801, end: 20031001
  2. AMBIEN [Concomitant]
  3. SEROQUEL [Concomitant]

REACTIONS (1)
  - DRUG INEFFECTIVE [None]
